FAERS Safety Report 7960112-2 (Version None)
Quarter: 2011Q4

REPORT INFORMATION
  Report Type: 
  Country: None (occurrence: None)
  Receive Date: 20111206
  Receipt Date: 20111129
  Transmission Date: 20120403
  Serious: Yes (Other)
  Sender: FDA-Public Use
  Company Number: BR-ABBOTT-11P-020-0704403-00

PATIENT
  Sex: Female
  Weight: 63 kg

DRUGS (7)
  1. METHOTREXATE [Concomitant]
     Indication: RHEUMATOID ARTHRITIS
  2. PREDNISONE TAB [Concomitant]
     Indication: ANTIINFLAMMATORY THERAPY
     Route: 048
  3. BROMOPRIDE [Concomitant]
     Indication: MALAISE
     Route: 048
  4. MIONEVRIX [Suspect]
     Indication: PAIN IN EXTREMITY
     Route: 048
     Dates: start: 20110118
  5. HUMIRA [Suspect]
     Indication: RHEUMATOID ARTHRITIS
     Route: 058
     Dates: end: 20111028
  6. METHOTREXATE [Concomitant]
     Indication: PRODUCT USED FOR UNKNOWN INDICATION
     Dosage: 4TABS IN D0+4TABS IN D1
     Route: 048
  7. FOLIC ACID [Concomitant]
     Indication: ANAEMIA PROPHYLAXIS
     Route: 048

REACTIONS (15)
  - ARTHRALGIA [None]
  - TUBERCULIN TEST POSITIVE [None]
  - CARPAL TUNNEL SYNDROME [None]
  - POOR QUALITY SLEEP [None]
  - FATIGUE [None]
  - BLOOD CHOLESTEROL INCREASED [None]
  - CYANOSIS [None]
  - OEDEMA PERIPHERAL [None]
  - DIZZINESS POSTURAL [None]
  - LIMB INJURY [None]
  - PAIN [None]
  - PAIN IN EXTREMITY [None]
  - MUSCULAR WEAKNESS [None]
  - HYPERSOMNIA [None]
  - RHEUMATOID ARTHRITIS [None]
